FAERS Safety Report 6405448-1 (Version None)
Quarter: 2009Q4

REPORT INFORMATION
  Report Type: 
  Country: None (occurrence: None)
  Receive Date: 20091019
  Receipt Date: 20091008
  Transmission Date: 20100525
  Serious: No
  Sender: FDA-Public Use
  Company Number: US-B.I. PHARMACEUTICALS,INC./RIDGEFIELD-2009-BP-10904BP

PATIENT
  Sex: Female

DRUGS (11)
  1. SPIRIVA [Suspect]
     Indication: CHRONIC OBSTRUCTIVE PULMONARY DISEASE
     Dosage: 18 MCG
     Dates: start: 20070901
  2. SPIRIVA [Suspect]
     Indication: EMPHYSEMA
  3. METHOTREXATE [Concomitant]
     Indication: ARTHRITIS
  4. HUMIRA [Concomitant]
     Indication: ARTHRITIS
  5. SIMVASTATIN [Concomitant]
     Dosage: 20 MG
  6. FOLIC ACID [Concomitant]
     Dosage: 800 MG
  7. VITAMIN B-12 [Concomitant]
     Dosage: 500 MG
  8. CENESTIN [Concomitant]
     Dosage: 1.25 MG
  9. OMEPRAZOLE [Concomitant]
     Dosage: 20 MG
  10. ADVAIR DISKUS 100/50 [Concomitant]
  11. ALBUTEROL [Concomitant]

REACTIONS (1)
  - DYSPNOEA [None]
